FAERS Safety Report 9737393 (Version 1)
Quarter: 2013Q4

REPORT INFORMATION
  Report Type: Spontaneous
  Country: GB (occurrence: GB)
  Receive Date: 20131206
  Receipt Date: 20131206
  Transmission Date: 20140711
  Serious: Yes (Hospitalization)
  Sender: FDA-Public Use
  Company Number: GB-CELGENEUS-167-21880-13115039

PATIENT
  Age: 72 Year
  Sex: Female

DRUGS (9)
  1. REVLIMID [Suspect]
     Indication: PLASMA CELL MYELOMA
     Route: 048
     Dates: end: 20130923
  2. REVLIMID [Suspect]
     Route: 048
     Dates: start: 20131009
  3. REVLIMID [Suspect]
     Route: 048
     Dates: start: 20131010
  4. ATENOLOL [Concomitant]
     Indication: HYPERTENSION
     Dosage: 25 MILLIGRAM
     Route: 048
  5. CALCICHEW D3 [Concomitant]
     Indication: OSTEOPOROSIS
     Route: 048
  6. CALCICHEW D3 [Concomitant]
     Indication: PROPHYLAXIS
  7. ENOXAPARIN SODIUM [Concomitant]
     Indication: THROMBOSIS
     Dosage: 40 MILLIGRAM
     Route: 058
  8. ENOXAPARIN SODIUM [Concomitant]
     Indication: PROPHYLAXIS
  9. MST CONTINUS [Concomitant]
     Indication: PAIN
     Route: 048

REACTIONS (5)
  - Oral pruritus [Recovered/Resolved]
  - Miliaria [Unknown]
  - Pruritus [Unknown]
  - Pneumonitis [Recovering/Resolving]
  - Rash [Unknown]
